FAERS Safety Report 8489621-7 (Version None)
Quarter: 2012Q2

REPORT INFORMATION
  Report Type: 
  Country: None (occurrence: None)
  Receive Date: 20120626
  Receipt Date: 20120613
  Transmission Date: 20120825
  Serious: Yes (Hospitalization)
  Sender: FDA-Public Use
  Company Number: 2012SP019561

PATIENT
  Age: 34 Year
  Sex: Female
  Weight: 57.5 kg

DRUGS (16)
  1. PEGINTERFERON ALFA-2A [Suspect]
     Indication: HEPATITIS C
     Dosage: 180 MCG;QW;SC  : 135 MCG;QW;SC
     Route: 058
     Dates: start: 20120105, end: 20120321
  2. PEGINTERFERON ALFA-2A [Suspect]
     Indication: HEPATITIS C
     Dosage: 180 MCG;QW;SC  : 135 MCG;QW;SC
     Route: 058
     Dates: start: 20120322, end: 20120322
  3. RIBAVIRIN [Suspect]
     Indication: HEPATITIS C
     Dosage: 200 MG;QD;PO
     Route: 048
     Dates: start: 20120105, end: 20120105
  4. ALBUTEROL SULATE [Concomitant]
  5. YASMIN [Concomitant]
  6. PIROXICAM [Concomitant]
  7. IBUPROFEN [Concomitant]
  8. FLUCONAZOLE [Concomitant]
  9. RIBAVIRIN [Suspect]
     Indication: HEPATITIS C
     Dosage: 30 MG;QD;PO
     Route: 048
     Dates: start: 20120105, end: 20120327
  10. METAMUCIL-2 [Concomitant]
  11. PROCHLORPERAZINE [Concomitant]
  12. METOCLOPRAMIDE [Concomitant]
  13. RIBAVIRIN [Suspect]
     Indication: HEPATITIS C
     Dosage: 1000 MG;QD;PO
     Route: 048
     Dates: start: 20120105, end: 20120327
  14. IMPLANON [Concomitant]
  15. LORAZEPAM [Concomitant]
  16. LOVAZA [Concomitant]

REACTIONS (15)
  - PLATELET COUNT INCREASED [None]
  - MENINGITIS [None]
  - NEUTROPENIA [None]
  - WHITE BLOOD CELL COUNT DECREASED [None]
  - VOMITING [None]
  - PHOTOPHOBIA [None]
  - NAUSEA [None]
  - NEUTROPHIL COUNT DECREASED [None]
  - OROPHARYNGEAL PAIN [None]
  - DIZZINESS [None]
  - HEADACHE [None]
  - UPPER RESPIRATORY TRACT INFECTION [None]
  - NECK PAIN [None]
  - RHINITIS [None]
  - MALAISE [None]
